FAERS Safety Report 5918422-6 (Version None)
Quarter: 2008Q4

REPORT INFORMATION
  Report Type: 
  Country: None (occurrence: None)
  Receive Date: 20081014
  Receipt Date: 20081014
  Transmission Date: 20090506
  Serious: Yes (Other)
  Sender: FDA-Public Use
  Company Number: None

PATIENT
  Sex: Female
  Weight: 94.3482 kg

DRUGS (6)
  1. DOXYCYCLINE [Suspect]
     Indication: ACNE
     Dosage: 100 MG 1XDAILY P.O.
     Route: 048
     Dates: end: 20080601
  2. INSULIN [Concomitant]
  3. TORPOLXL [Concomitant]
  4. SEROQUEL [Concomitant]
  5. IRON [Concomitant]
  6. CALCIUM [Concomitant]

REACTIONS (1)
  - VOMITING [None]
